FAERS Safety Report 10724086 (Version 1)
Quarter: 2015Q1

REPORT INFORMATION
  Report Type: Spontaneous
  Country: US (occurrence: None)
  Receive Date: 20150116
  Receipt Date: 20150116
  Transmission Date: 20150721
  Serious: Yes (Life-Threatening)
  Sender: FDA-Public Use
  Company Number: None

PATIENT
  Age: 52 Year
  Sex: Female
  Weight: 54.43 kg

DRUGS (15)
  1. LORAZEPA, [Concomitant]
  2. TYLENOL [Concomitant]
     Active Substance: ACETAMINOPHEN
  3. VICODIN [Suspect]
     Active Substance: ACETAMINOPHEN\HYDROCODONE BITARTRATE
     Indication: INCONTINENCE
     Route: 048
     Dates: start: 20140923, end: 20140924
  4. ANTIBIOTIC [Concomitant]
     Active Substance: UNSPECIFIED INGREDIENT
  5. IBUPROFEN. [Concomitant]
     Active Substance: IBUPROFEN
  6. MELOXICAM. [Concomitant]
     Active Substance: MELOXICAM
  7. FLOVENT HFA [Concomitant]
     Active Substance: FLUTICASONE PROPIONATE
  8. DIPHENHYDRAMINE [Concomitant]
     Active Substance: DIPHENHYDRAMINE
  9. OMERPRAZOLE [Concomitant]
  10. VITAMIN B12 [Concomitant]
     Active Substance: CYANOCOBALAMIN
  11. VICODIN [Suspect]
     Active Substance: ACETAMINOPHEN\HYDROCODONE BITARTRATE
     Indication: BLADDER NECK SUSPENSION
     Route: 048
     Dates: start: 20140923, end: 20140924
  12. PUBOVAGINAL SLING IMPLANT DISTRIBUTED BY COLOPLAST CORP SLING [Suspect]
     Active Substance: DEVICE
     Dates: start: 20140722, end: 20140723
  13. SELF CATH [Concomitant]
  14. NITROFURANTOIN MONPHYDRATE [Concomitant]
  15. DULOXITINE [Concomitant]

REACTIONS (14)
  - Bladder pain [None]
  - Abdominal pain [None]
  - Incontinence [None]
  - Urinary retention [None]
  - Urinary tract infection [None]
  - Haemorrhage [None]
  - Documented hypersensitivity to administered product [None]
  - Incision site complication [None]
  - Post procedural complication [None]
  - Thrombosis [None]
  - Wrong drug administered [None]
  - Urethral disorder [None]
  - Sepsis [None]
  - Procedural complication [None]

NARRATIVE: CASE EVENT DATE: 20140722
